FAERS Safety Report 13262726 (Version 6)
Quarter: 2024Q1

REPORT INFORMATION
  Report Type: Other
  Country: CA (occurrence: CA)
  Receive Date: 20170223
  Receipt Date: 20240318
  Transmission Date: 20240409
  Serious: Yes (Other)
  Sender: FDA-Public Use
  Company Number: CA-002147023-PHHY2014CA034432

PATIENT
  Age: 52 Year
  Sex: Female

DRUGS (8)
  1. XOLAIR [Suspect]
     Active Substance: OMALIZUMAB
     Indication: Chronic spontaneous urticaria
     Route: 058
     Dates: start: 20131126, end: 20180328
  2. XOLAIR [Suspect]
     Active Substance: OMALIZUMAB
     Route: 058
  3. NEORAL [Suspect]
     Active Substance: CYCLOSPORINE
     Indication: Product used for unknown indication
     Route: 065
     Dates: start: 2013
  4. NEORAL [Suspect]
     Active Substance: CYCLOSPORINE
     Route: 065
     Dates: start: 20140225
  5. NEORAL [Suspect]
     Active Substance: CYCLOSPORINE
     Route: 065
     Dates: end: 2014
  6. CETIRIZINE HYDROCHLORIDE [Concomitant]
     Active Substance: CETIRIZINE HYDROCHLORIDE
     Indication: Product used for unknown indication
     Route: 065
  7. SINGULAIR [Concomitant]
     Active Substance: MONTELUKAST SODIUM
     Indication: Product used for unknown indication
     Dosage: AT BED TIME
     Route: 065
  8. BILASTINE [Concomitant]
     Active Substance: BILASTINE
     Route: 065

REACTIONS (22)
  - Epistaxis [Unknown]
  - Hypersensitivity [Unknown]
  - Urticaria [Recovering/Resolving]
  - Anaphylactic reaction [Unknown]
  - Skin plaque [Unknown]
  - Food allergy [Unknown]
  - Abdominal pain [Unknown]
  - Erythema [Unknown]
  - Cold sweat [Unknown]
  - Pain [Unknown]
  - Excessive cerumen production [Unknown]
  - Dizziness [Unknown]
  - Corneal deposits [Unknown]
  - Headache [Unknown]
  - Vertigo [Unknown]
  - Diarrhoea [Unknown]
  - Paraesthesia [Unknown]
  - Nasopharyngitis [Unknown]
  - Injection site bruising [Unknown]
  - Product preparation issue [Unknown]
  - Therapeutic response decreased [Unknown]
  - Abdominal pain upper [Unknown]

NARRATIVE: CASE EVENT DATE: 20180415
